FAERS Safety Report 4708686-9 (Version None)
Quarter: 2005Q3

REPORT INFORMATION
  Report Type: 
  Country: None (occurrence: None)
  Receive Date: 20050706
  Receipt Date: 20050630
  Transmission Date: 20060218
  Serious: Yes (Hospitalization)
  Sender: FDA-Public Use
  Company Number: CERZ-10821

PATIENT
  Age: 46 Year
  Sex: Female
  Weight: 67.7 kg

DRUGS (1)
  1. CEREZYME [Suspect]
     Indication: GAUCHER'S DISEASE
     Dosage: 45 U/KG Q2WKS IV
     Route: 042
     Dates: start: 20011112

REACTIONS (4)
  - ARTHRALGIA [None]
  - ASEPTIC NECROSIS BONE [None]
  - DRUG DOSE OMISSION [None]
  - JOINT DISLOCATION [None]
